FAERS Safety Report 22917808 (Version 12)
Quarter: 2024Q1

REPORT INFORMATION
  Report Type: Report from Study
  Country: RU (occurrence: RU)
  Receive Date: 20230907
  Receipt Date: 20240126
  Transmission Date: 20240410
  Serious: Yes (Other)
  Sender: FDA-Public Use
  Company Number: RU-002147023-NVSC2023RU192915

PATIENT
  Age: 10 Month
  Sex: Female

DRUGS (6)
  1. ZOLGENSMA [Suspect]
     Active Substance: ONASEMNOGENE ABEPARVOVEC-XIOI
     Indication: Spinal muscular atrophy
     Dosage: 48.7 ML, ONCE/SINGLE
     Route: 041
     Dates: start: 20230818, end: 20230818
  2. PREDNISOLONE [Concomitant]
     Active Substance: PREDNISOLONE
     Indication: Product used for unknown indication
     Dosage: 13.75 MG (2 TABLET PLUS 3/4 TABLET), EVERY MORNING
     Route: 065
     Dates: start: 20230816
  3. METHYLPREDNISOLONE [Concomitant]
     Active Substance: METHYLPREDNISOLONE
     Indication: Product used for unknown indication
     Dosage: 250 MG
     Route: 065
     Dates: start: 20230822, end: 20230824
  4. METOCLOPRAMIDE [Concomitant]
     Active Substance: METOCLOPRAMIDE
     Indication: Product used for unknown indication
     Dosage: 0.3 ML, TID
     Route: 065
     Dates: start: 20230821, end: 20230824
  5. VITAMIN D [Concomitant]
     Active Substance: VITAMIN D NOS
     Indication: Product used for unknown indication
     Dosage: 1000 IU
     Route: 065
     Dates: start: 20230816
  6. ENOXAPARIN SODIUM [Concomitant]
     Active Substance: ENOXAPARIN SODIUM
     Indication: Product used for unknown indication
     Dosage: 0.1 ML
     Route: 065
     Dates: start: 20230823, end: 20230828

REACTIONS (8)
  - Blood test abnormal [Not Recovered/Not Resolved]
  - General physical health deterioration [Recovering/Resolving]
  - Vomiting [Recovering/Resolving]
  - Regurgitation [Recovering/Resolving]
  - Pyrexia [Recovering/Resolving]
  - Alanine aminotransferase increased [Unknown]
  - Aspartate aminotransferase increased [Unknown]
  - Blood lactate dehydrogenase increased [Unknown]

NARRATIVE: CASE EVENT DATE: 20230819
